FAERS Safety Report 6017749-X (Version None)
Quarter: 2008Q4

REPORT INFORMATION
  Report Type: 
  Country: None (occurrence: None)
  Receive Date: 20081223
  Receipt Date: 20081217
  Transmission Date: 20090506
  Serious: Yes (Death)
  Sender: FDA-Public Use
  Company Number: JP-TYCO HEALTHCARE/MALLINCKRODT-T200802141

PATIENT
  Age: 81 Year
  Sex: Female

DRUGS (1)
  1. SODIUM IODIDE I 131 [Suspect]
     Dosage: 150 MCI, UNK
     Dates: start: 20010801

REACTIONS (3)
  - METASTASES TO LUNG [None]
  - NEOPLASM MALIGNANT [None]
  - RESPIRATORY FAILURE [None]
